FAERS Safety Report 9087748 (Version 1)
Quarter: 2013Q1

REPORT INFORMATION
  Report Type: Report from Study
  Country: US (occurrence: US)
  Receive Date: 20130201
  Receipt Date: 20130201
  Transmission Date: 20140127
  Serious: No
  Sender: FDA-Public Use
  Company Number: US-ABBOTT-12P-163-1025103-00

PATIENT
  Sex: Male

DRUGS (3)
  1. HUMIRA [Suspect]
     Indication: CROHN^S DISEASE
     Dates: start: 201210, end: 201210
  2. HUMIRA [Suspect]
     Dosage: TWO WEEKS AFTER 160MG DOSE
  3. HUMIRA [Suspect]
     Dosage: TWO WEEKS AFTER 80MG DOSE

REACTIONS (1)
  - Crohn^s disease [Not Recovered/Not Resolved]
